FAERS Safety Report 5833521-5 (Version None)
Quarter: 2008Q3

REPORT INFORMATION
  Report Type: 
  Country: None (occurrence: None)
  Receive Date: 20080804
  Receipt Date: 20080804
  Transmission Date: 20090109
  Serious: Yes (Other)
  Sender: FDA-Public Use
  Company Number: None

PATIENT
  Age: 58 Year
  Sex: Female
  Weight: 53.5244 kg

DRUGS (1)
  1. ZOMETA [Suspect]
     Indication: RESORPTION BONE INCREASED
     Dosage: 30 MINUTE IV ONE DOSE SO FAR PLAN MY BY ANNUAL IV
     Route: 042
     Dates: start: 20080731, end: 20080731

REACTIONS (9)
  - CARDIAC FLUTTER [None]
  - DRUG INEFFECTIVE [None]
  - DRUG TOXICITY [None]
  - DYSPNOEA [None]
  - FEELING ABNORMAL [None]
  - HYPOPHAGIA [None]
  - MIGRAINE [None]
  - STRESS [None]
  - TENSION HEADACHE [None]
